FAERS Safety Report 16664493 (Version 5)
Quarter: 2021Q2

REPORT INFORMATION
  Report Type: Spontaneous
  Country: BE (occurrence: BE)
  Receive Date: 20190802
  Receipt Date: 20210607
  Transmission Date: 20210716
  Serious: Yes (Life-Threatening, Hospitalization, Other)
  Sender: FDA-Public Use
  Company Number: PHHY2019BE168520

PATIENT
  Age: 43 Year
  Sex: Female

DRUGS (17)
  1. FOSCARNET SODIUM. [Suspect]
     Active Substance: FOSCARNET SODIUM
     Dosage: 5600 MG, QD (2 X2800 MG/DAY;STOPPED AT DAY 101; THIS DOSE WAS LOWERED AFTER 6 DAYS TREATMENT)
     Route: 065
  2. IVEGAM CMV [Concomitant]
     Active Substance: HUMAN CYTOMEGALOVIRUS IMMUNE GLOBULIN
     Indication: PRODUCT USED FOR UNKNOWN INDICATION
     Dosage: 1 G, UNK
     Route: 065
  3. BASILIXIMAB [Suspect]
     Active Substance: BASILIXIMAB
     Indication: RENAL TRANSPLANT
     Dosage: UNK (INDUCTON)
     Route: 065
  4. VALGANCICLOVIR. [Suspect]
     Active Substance: VALGANCICLOVIR
     Indication: ANTIVIRAL PROPHYLAXIS
     Dosage: 450 MG, QD AUGMENTED TO 2 X 450 MG/D (DAY 43 POST?TRANSPLANTATION)
     Route: 065
  5. GANCICLOVIR. [Suspect]
     Active Substance: GANCICLOVIR
     Dosage: UNK (GANCICLOVIR IN COMBINATION WITH FOSCARNET AND CMV IG WERE RESTARTED)
     Route: 065
  6. MYCOPHENOLATE MOFETIL. [Suspect]
     Active Substance: MYCOPHENOLATE MOFETIL
     Indication: IMMUNOSUPPRESSANT DRUG THERAPY
  7. METHYLPREDNISOLONE. [Suspect]
     Active Substance: METHYLPREDNISOLONE
     Indication: IMMUNOSUPPRESSANT DRUG THERAPY
     Dosage: LOW?DOSE METHYLPREDNISOLONE
     Route: 065
  8. IVEGAM CMV [Concomitant]
     Active Substance: HUMAN CYTOMEGALOVIRUS IMMUNE GLOBULIN
     Dosage: UNK (GANCICLOVIR IN COMBINATION WITH FOSCARNET AND CMV IG WERE RESTARTED)
     Route: 065
  9. CIDOFOVIR. [Suspect]
     Active Substance: CIDOFOVIR
     Dosage: 5 MG/KG, QW
     Route: 065
  10. BASILIXIMAB [Suspect]
     Active Substance: BASILIXIMAB
     Indication: IMMUNOSUPPRESSANT DRUG THERAPY
  11. MYCOPHENOLATE MOFETIL. [Suspect]
     Active Substance: MYCOPHENOLATE MOFETIL
     Indication: RENAL TRANSPLANT
     Dosage: 2X500 MG/DAY, DECREASED
     Route: 065
  12. CIDOFOVIR. [Suspect]
     Active Substance: CIDOFOVIR
     Indication: NEPHROPATHY
     Dosage: 2.5 MG/KG
     Route: 065
  13. GANCICLOVIR. [Suspect]
     Active Substance: GANCICLOVIR
     Indication: CYTOMEGALOVIRUS INFECTION
     Dosage: 5 MG/KG (2 X 2.5 MG/KG), QD (FROM DAY 86 TO DAY 94)
     Route: 065
  14. TACROLIMUS. [Suspect]
     Active Substance: TACROLIMUS
     Indication: RENAL TRANSPLANT
     Dosage: UNK
     Route: 065
  15. TACROLIMUS. [Suspect]
     Active Substance: TACROLIMUS
     Indication: IMMUNOSUPPRESSANT DRUG THERAPY
  16. FOSCARNET SODIUM. [Suspect]
     Active Substance: FOSCARNET SODIUM
     Indication: CYTOMEGALOVIRUS INFECTION
     Dosage: UNK (GANCICLOVIR IN COMBINATION WITH FOSCARNET AND CMV IG WERE RESTARTED)
     Route: 065
  17. CIDOFOVIR. [Suspect]
     Active Substance: CIDOFOVIR
     Dosage: 1 MG/KG
     Route: 065

REACTIONS (12)
  - Cytomegalovirus infection [Recovered/Resolved]
  - Gastric disorder [Unknown]
  - Drug resistance [Unknown]
  - Viral uveitis [Recovered/Resolved]
  - Thrombocytopenia [Recovered/Resolved]
  - Hepatic function abnormal [Recovering/Resolving]
  - Renal impairment [Recovering/Resolving]
  - C-reactive protein increased [Unknown]
  - Diarrhoea [Recovered/Resolved]
  - Transplant rejection [Recovered/Resolved]
  - Nephropathy [Recovered/Resolved]
  - Asthenia [Unknown]
